FAERS Safety Report 9386663 (Version 2)
Quarter: 2013Q3

REPORT INFORMATION
  Report Type: Spontaneous
  Country: US (occurrence: US)
  Receive Date: 20130708
  Receipt Date: 20130820
  Transmission Date: 20140515
  Serious: No
  Sender: FDA-Public Use
  Company Number: US-PFIZER INC-2013197727

PATIENT
  Age: 87 Year
  Sex: Female
  Weight: 58.96 kg

DRUGS (7)
  1. LATANOPROST [Suspect]
     Indication: INTRAOCULAR PRESSURE TEST ABNORMAL
     Dosage: 1 DROP EACH EYE, 1X/DAY
     Route: 047
  2. LATANOPROST [Suspect]
     Dosage: 1 DROP EACH EYE, 1X/DAY
  3. TIAZAC [Concomitant]
     Dosage: 120 MG, 1X/DAY
  4. VALSARTAN/HYDROCHLOROTHIAZIDE [Concomitant]
     Dosage: HYDROCHLOROTHIAZIDE 325 MG/VALSARTAN 12.5 MG, UNK
  5. LEVOTHYROXINE [Concomitant]
     Dosage: 75 UG, UNK
  6. COMBIGAN [Concomitant]
     Dosage: UNK
  7. CRESTOR [Concomitant]
     Dosage: 5 MG, UNK

REACTIONS (1)
  - Drug ineffective [Unknown]
